FAERS Safety Report 15723160 (Version 1)
Quarter: 2018Q4

REPORT INFORMATION
  Report Type: Spontaneous
  Country: JP (occurrence: JP)
  Receive Date: 20181214
  Receipt Date: 20181214
  Transmission Date: 20190205
  Serious: Yes (Other)
  Sender: FDA-Public Use
  Company Number: JP-PFIZER INC-2018507045

PATIENT
  Age: 83 Year
  Sex: Female

DRUGS (5)
  1. TERIBONE [Concomitant]
     Active Substance: TERIPARATIDE ACETATE
     Dosage: UNK
     Route: 058
  2. MARZULENE COMBINATION [Concomitant]
     Dosage: UNK
  3. TRAMCET [Suspect]
     Active Substance: ACETAMINOPHEN\TRAMADOL
     Dosage: 4 DF, DAILY
     Route: 048
     Dates: end: 20181129
  4. LYRICA [Suspect]
     Active Substance: PREGABALIN
     Dosage: 225 MG, DAILY
     Route: 048
     Dates: start: 20181013, end: 20181129
  5. MAGMITT [Concomitant]
     Active Substance: MAGNESIUM OXIDE
     Dosage: UNK

REACTIONS (5)
  - Osteoarthritis [Unknown]
  - Osteoporosis [Unknown]
  - Spinal compression fracture [Unknown]
  - Hepatic function abnormal [Unknown]
  - Spinal osteoarthritis [Unknown]

NARRATIVE: CASE EVENT DATE: 20181119
